FAERS Safety Report 5474628-4 (Version None)
Quarter: 2007Q3

REPORT INFORMATION
  Report Type: 
  Country: None (occurrence: None)
  Receive Date: 20070831
  Receipt Date: 20070430
  Transmission Date: 20080115
  Serious: No
  Sender: FDA-Public Use
  Company Number: 240739

PATIENT
  Age: 77 Year
  Sex: Female

DRUGS (4)
  1. LUCENTIS [Suspect]
     Indication: DRUG USE FOR UNKNOWN INDICATION
     Dates: start: 20060315
  2. NORVASC [Concomitant]
  3. MERCAPTOPURINE [Concomitant]
  4. ATENOLOL [Concomitant]

REACTIONS (1)
  - VISUAL ACUITY REDUCED [None]
